FAERS Safety Report 6147379-0 (Version None)
Quarter: 2009Q2

REPORT INFORMATION
  Report Type: 
  Country: None (occurrence: None)
  Receive Date: 20090408
  Receipt Date: 20090327
  Transmission Date: 20091009
  Serious: Yes (Disabling, Other)
  Sender: FDA-Public Use
  Company Number: CA-PFIZER INC-2009190524

PATIENT

DRUGS (1)
  1. SUTENT [Suspect]
     Indication: RENAL CANCER
     Dosage: UNK
     Dates: start: 20071001

REACTIONS (8)
  - AGEUSIA [None]
  - ANOREXIA [None]
  - BLINDNESS [None]
  - HAEMORRHAGE [None]
  - HEADACHE [None]
  - MALAISE [None]
  - RASH [None]
  - VOMITING [None]
